FAERS Safety Report 7034370-5 (Version None)
Quarter: 2010Q4

REPORT INFORMATION
  Report Type: 
  Country: None (occurrence: None)
  Receive Date: 20101008
  Receipt Date: 20100930
  Transmission Date: 20110411
  Serious: Yes (Hospitalization, Other)
  Sender: FDA-Public Use
  Company Number: DE-JNJFOC-20100703756

PATIENT
  Sex: Female

DRUGS (14)
  1. DURAGESIC-100 [Suspect]
     Indication: POLYMYOSITIS
     Route: 062
  2. DURAGESIC-100 [Suspect]
     Indication: PAIN
     Route: 062
  3. MTX [Concomitant]
     Indication: PRODUCT USED FOR UNKNOWN INDICATION
     Route: 065
  4. LEVOTHYROXINE SODIUM [Concomitant]
     Indication: PRODUCT USED FOR UNKNOWN INDICATION
     Route: 065
  5. ASPIRIN [Concomitant]
     Indication: PRODUCT USED FOR UNKNOWN INDICATION
     Route: 065
  6. VITAMIN D [Concomitant]
     Indication: PRODUCT USED FOR UNKNOWN INDICATION
     Route: 065
  7. CALCIUM [Concomitant]
     Indication: PRODUCT USED FOR UNKNOWN INDICATION
     Route: 065
  8. APIDRA [Concomitant]
     Indication: PRODUCT USED FOR UNKNOWN INDICATION
     Route: 065
  9. DECORTIN [Concomitant]
     Indication: PRODUCT USED FOR UNKNOWN INDICATION
     Route: 065
  10. FOLSAN [Concomitant]
     Indication: PRODUCT USED FOR UNKNOWN INDICATION
     Route: 065
  11. SEROQUEL XR [Concomitant]
     Indication: PRODUCT USED FOR UNKNOWN INDICATION
     Route: 065
  12. LISINOPRIL [Concomitant]
     Route: 065
  13. HCT [Concomitant]
     Route: 065
  14. BONDRONAT [Concomitant]
     Route: 065

REACTIONS (13)
  - APPLICATION SITE ERYTHEMA [None]
  - BIPOLAR DISORDER [None]
  - BLOOD URINE PRESENT [None]
  - CARDIOVASCULAR DISORDER [None]
  - DYSURIA [None]
  - FALL [None]
  - NAUSEA [None]
  - OVERDOSE [None]
  - PAIN [None]
  - PALPITATIONS [None]
  - PRODUCT QUALITY ISSUE [None]
  - SKIN REACTION [None]
  - WRONG TECHNIQUE IN DRUG USAGE PROCESS [None]
